FAERS Safety Report 18501439 (Version 1)
Quarter: 2020Q4

REPORT INFORMATION
  Report Type: Spontaneous
  Country: JP (occurrence: JP)
  Receive Date: 20201113
  Receipt Date: 20201113
  Transmission Date: 20210114
  Serious: Yes (Other)
  Sender: FDA-Public Use
  Company Number: JP-PFIZER INC-2020442708

PATIENT

DRUGS (3)
  1. SOLANAX [Suspect]
     Active Substance: ALPRAZOLAM
     Indication: AUTONOMIC NERVOUS SYSTEM IMBALANCE
     Dosage: 3 DF
     Route: 048
  2. SOLANAX [Suspect]
     Active Substance: ALPRAZOLAM
     Dosage: 2 DF
     Route: 048
  3. DAYVIGO [Suspect]
     Active Substance: LEMBOREXANT
     Indication: INSOMNIA
     Dosage: UNK
     Route: 048

REACTIONS (9)
  - Pain [Unknown]
  - Neck injury [Unknown]
  - Insomnia [Unknown]
  - Limb injury [Unknown]
  - Product use issue [Unknown]
  - Off label use [Unknown]
  - Cerebral atrophy [Unknown]
  - Hypoacusis [Unknown]
  - Headache [Unknown]
